FAERS Safety Report 5514564-8 (Version None)
Quarter: 2007Q4

REPORT INFORMATION
  Report Type: 
  Country: None (occurrence: None)
  Receive Date: 20071113
  Receipt Date: 20071106
  Transmission Date: 20080405
  Serious: Yes (Other)
  Sender: FDA-Public Use
  Company Number: B0384561A

PATIENT
  Age: 56 Year
  Sex: Male
  Weight: 60 kg

DRUGS (6)
  1. PAXIL [Suspect]
     Indication: DEPRESSION
     Route: 048
     Dates: start: 20050502, end: 20050526
  2. LORAZEPAM [Concomitant]
     Dosage: 2MG PER DAY
     Route: 048
  3. URSO 250 [Concomitant]
     Indication: HEPATIC FUNCTION ABNORMAL
     Route: 048
     Dates: start: 19970113
  4. LORAMET [Concomitant]
     Dosage: 1MG PER DAY
     Route: 048
  5. THYRADIN S [Concomitant]
     Indication: HYPOTHYROIDISM
     Route: 048
     Dates: start: 19970113
  6. INCHIN-KO-TO [Concomitant]
     Indication: HEPATIC FUNCTION ABNORMAL
     Dosage: 6G PER DAY
     Route: 048
     Dates: start: 20050531, end: 20050825

REACTIONS (8)
  - ALANINE AMINOTRANSFERASE INCREASED [None]
  - ASPARTATE AMINOTRANSFERASE INCREASED [None]
  - BODY TEMPERATURE DECREASED [None]
  - DRY SKIN [None]
  - HEART RATE DECREASED [None]
  - HEPATIC FUNCTION ABNORMAL [None]
  - HYPOTHYROIDISM [None]
  - MALAISE [None]
